FAERS Safety Report 5000863-5 (Version None)
Quarter: 2006Q2

REPORT INFORMATION
  Report Type: 
  Country: None (occurrence: None)
  Receive Date: 20060512
  Receipt Date: 20060502
  Transmission Date: 20061013
  Serious: Yes (Hospitalization, Disabling)
  Sender: FDA-Public Use
  Company Number: US-MERCK-0605USA00804

PATIENT
  Age: 55 Year
  Sex: Male
  Weight: 99 kg

DRUGS (7)
  1. VIOXX [Suspect]
     Indication: ARTHRITIS
     Route: 048
     Dates: start: 20011001
  2. NITROQUICK [Concomitant]
     Route: 065
  3. TYLENOL (CAPLET) [Concomitant]
     Route: 065
  4. PLAVIX [Concomitant]
     Route: 065
  5. ZOCOR [Concomitant]
     Route: 048
  6. PROTONIX [Concomitant]
     Route: 065
  7. BEXTRA [Concomitant]
     Route: 065

REACTIONS (3)
  - BACK DISORDER [None]
  - CARDIAC DISORDER [None]
  - MYOCARDIAL INFARCTION [None]
